FAERS Safety Report 4927812-X (Version None)
Quarter: 2006Q1

REPORT INFORMATION
  Report Type: 
  Country: None (occurrence: None)
  Receive Date: 20060222
  Receipt Date: 20060208
  Transmission Date: 20060701
  Serious: Yes (Other)
  Sender: FDA-Public Use
  Company Number: 002#1#2005-00346

PATIENT
  Age: 62 Year
  Sex: Male

DRUGS (1)
  1. EDEX [Suspect]
     Indication: ERECTILE DYSFUNCTION
     Dosage: 10MCG, LASNEC, INTRACAVERNOUS
     Route: 017

REACTIONS (3)
  - DEVICE FAILURE [None]
  - FOREIGN BODY TRAUMA [None]
  - THERAPY NON-RESPONDER [None]
